FAERS Safety Report 8852258 (Version 1)
Quarter: 2012Q4

REPORT INFORMATION
  Report Type: Spontaneous
  Country: RS (occurrence: None)
  Receive Date: 20121017
  Receipt Date: 20121017
  Transmission Date: 20130627
  Serious: Yes (Hospitalization)
  Sender: FDA-Public Use
  Company Number: DSA_60083_2012

PATIENT
  Age: 30 Year
  Sex: Female

DRUGS (9)
  1. METRONIDAZOLE (METRONIDAZOLE) [Suspect]
     Indication: CLOSTRIDIAL INFECTION
  2. TACROLIMUS [Suspect]
  3. TACROLIMUS [Suspect]
  4. TACROLIMUS [Suspect]
  5. TACROLIMUS [Suspect]
  6. MYCOPHENOLATE MOFETIL [Concomitant]
  7. PREDNISOLONE [Concomitant]
  8. CARVEDILOL [Concomitant]
  9. METHYLDOPA [Concomitant]

REACTIONS (7)
  - Asthenia [None]
  - Dehydration [None]
  - Drug interaction [None]
  - Blood creatinine increased [None]
  - Metabolic acidosis [None]
  - Hypomagnesaemia [None]
  - Drug level increased [None]
